FAERS Safety Report 12678355 (Version 2)
Quarter: 2017Q1

REPORT INFORMATION
  Report Type: Spontaneous
  Country: US (occurrence: US)
  Receive Date: 20160823
  Receipt Date: 20170213
  Transmission Date: 20170428
  Serious: Yes (Hospitalization, Other)
  Sender: FDA-Public Use
  Company Number: US-ELI_LILLY_AND_COMPANY-US201608007829

PATIENT
  Sex: Male

DRUGS (8)
  1. HUMULIN N [Suspect]
     Active Substance: INSULIN HUMAN
     Indication: TYPE 1 DIABETES MELLITUS
     Dosage: 30 U, EACH MORNING
     Route: 065
     Dates: start: 197306
  2. HUMULIN N [Suspect]
     Active Substance: INSULIN HUMAN
     Dosage: 20 U, EACH EVENING
     Route: 065
     Dates: start: 197306
  3. ASPIRIN                            /00002701/ [Concomitant]
     Active Substance: ASPIRIN
  4. HUMULIN R [Suspect]
     Active Substance: INSULIN HUMAN
     Indication: TYPE 1 DIABETES MELLITUS
     Dosage: UNK UNK, PRN
     Route: 065
     Dates: start: 197306
  5. HUMALOG [Suspect]
     Active Substance: INSULIN LISPRO
     Indication: PRODUCT USED FOR UNKNOWN INDICATION
     Dosage: UNK, UNKNOWN
     Route: 065
     Dates: start: 1989, end: 1991
  6. NOVOLIN [Suspect]
     Active Substance: INSULIN HUMAN
     Indication: PRODUCT USED FOR UNKNOWN INDICATION
     Dosage: UNK, UNKNOWN
     Route: 065
  7. LANTUS [Suspect]
     Active Substance: INSULIN GLARGINE
     Indication: PRODUCT USED FOR UNKNOWN INDICATION
     Dosage: UNK, UNKNOWN
     Route: 065
  8. NOVOLOG [Concomitant]
     Active Substance: INSULIN ASPART

REACTIONS (10)
  - Cerebrovascular accident [Unknown]
  - Myocardial infarction [Unknown]
  - Myocardial infarction [Unknown]
  - Diabetic retinopathy [Unknown]
  - Hypermetropia [Unknown]
  - Thrombosis [Unknown]
  - Blood glucose increased [Unknown]
  - Pyrexia [Unknown]
  - Myopia [Unknown]
  - Swelling [Unknown]

NARRATIVE: CASE EVENT DATE: 1994
